FAERS Safety Report 16232183 (Version 2)
Quarter: 2019Q2

REPORT INFORMATION
  Report Type: Spontaneous
  Country: IT (occurrence: IT)
  Receive Date: 20190424
  Receipt Date: 20190518
  Transmission Date: 20190711
  Serious: Yes (Other)
  Sender: FDA-Public Use
  Company Number: PHHY2019IT089641

PATIENT
  Age: 29 Year
  Sex: Female

DRUGS (10)
  1. BEMIPARIN [Suspect]
     Active Substance: BEMIPARIN
     Indication: THROMBOSIS PROPHYLAXIS
     Dosage: 3500 IU, QH
     Route: 058
  2. CHLORPROMAZINE. [Suspect]
     Active Substance: CHLORPROMAZINE
     Indication: HYPEREMESIS GRAVIDARUM
     Route: 065
  3. BETAMETHASONE. [Suspect]
     Active Substance: BETAMETHASONE
     Indication: MATERNAL THERAPY TO ENHANCE FOETAL LUNG MATURITY
     Dosage: 12 MG, QD
     Route: 030
  4. MAGNESIUM SULFATE. [Suspect]
     Active Substance: MAGNESIUM SULFATE
     Indication: NERVOUS SYSTEM DISORDER
     Dosage: 1 G, QH
     Route: 042
  5. MAGNESIUM SULFATE. [Suspect]
     Active Substance: MAGNESIUM SULFATE
     Dosage: 24 G, (DAY 5, AT 24 +5 WEEKS)
     Route: 042
  6. ATOSIBAN [Suspect]
     Active Substance: ATOSIBAN
     Indication: TOCOLYSIS
     Dosage: 6.75 MG, (BOLUS OVER 1 MIN)
     Route: 042
  7. CEFAZOLINE [Suspect]
     Active Substance: CEFAZOLIN SODIUM
     Indication: PROPHYLAXIS
     Dosage: 1 G, Q8H
     Route: 042
  8. ATOSIBAN [Suspect]
     Active Substance: ATOSIBAN
     Dosage: 120 ML/MIN, UNK
     Route: 041
  9. ATOSIBAN [Suspect]
     Active Substance: ATOSIBAN
     Dosage: 40 ML/MIN, (WITH A TOTAL OF 330,75 MG OVER 44 H)
     Route: 041
  10. MAGNESIUM SULFATE. [Suspect]
     Active Substance: MAGNESIUM SULFATE
     Indication: PROPHYLAXIS
     Dosage: 4 G, (OVER 20 MIN)
     Route: 042

REACTIONS (4)
  - Foetal growth abnormality [Unknown]
  - Product use in unapproved indication [Unknown]
  - Maternal exposure during pregnancy [Recovered/Resolved]
  - Premature delivery [Unknown]
